FAERS Safety Report 8487733-5 (Version None)
Quarter: 2012Q2

REPORT INFORMATION
  Report Type: 
  Country: None (occurrence: None)
  Receive Date: 20120402
  Receipt Date: 20100419
  Transmission Date: 20120825
  Serious: Yes (Other)
  Sender: FDA-Public Use
  Company Number: PHHY2010US25091

PATIENT
  Age: 59 Year
  Sex: Female
  Weight: 136 kg

DRUGS (7)
  1. OMEPRAZOLE [Concomitant]
  2. EXFORGE [Suspect]
     Indication: HYPERTENSION
     Dosage: 1 DF, QD, ORAL
     Route: 048
     Dates: start: 20100121, end: 20100316
  3. METFORMIN HCL [Concomitant]
  4. GLIPIZIDE [Concomitant]
  5. LEVOTHYROXINE SODIUM [Concomitant]
  6. ACTOS [Concomitant]
  7. LIPITAC (DOCOSAHEXANOIC ACID, EICOSAPENTAENOIC ACID) [Concomitant]

REACTIONS (3)
  - SKIN TIGHTNESS [None]
  - OEDEMA [None]
  - JOINT SWELLING [None]
